FAERS Safety Report 6334345-5 (Version None)
Quarter: 2009Q3

REPORT INFORMATION
  Report Type: 
  Country: None (occurrence: None)
  Receive Date: 20090831
  Receipt Date: 20090826
  Transmission Date: 20100115
  Serious: Yes (Death)
  Sender: FDA-Public Use
  Company Number: US-RANBAXY-2009US-26756

PATIENT

DRUGS (4)
  1. NIFEDIPIN BASICS 30 MG UNO [Suspect]
     Indication: DRUG USE FOR UNKNOWN INDICATION
     Dosage: 30 MG, 30 TABLETS
     Route: 048
  2. METOPROLOL [Suspect]
     Indication: DRUG USE FOR UNKNOWN INDICATION
  3. CAFFEINE CITRATE [Suspect]
     Indication: DRUG USE FOR UNKNOWN INDICATION
     Route: 048
  4. DIAZEPAM [Suspect]
     Indication: DRUG USE FOR UNKNOWN INDICATION
     Route: 048

REACTIONS (2)
  - CARDIAC ARREST [None]
  - COMPLETED SUICIDE [None]
